FAERS Safety Report 9805502 (Version 1)
Quarter: 2014Q1

REPORT INFORMATION
  Report Type: Spontaneous
  Country: FR (occurrence: FR)
  Receive Date: 20140109
  Receipt Date: 20140109
  Transmission Date: 20141002
  Serious: Yes (Other)
  Sender: FDA-Public Use
  Company Number: FR-NOVOPROD-397149

PATIENT
  Age: 57 Year
  Sex: Male

DRUGS (8)
  1. VICTOZA [Suspect]
     Indication: TYPE 2 DIABETES MELLITUS
     Dosage: 1.8 MG, QD
     Route: 058
     Dates: start: 20120306
  2. NOVONORM [Concomitant]
     Dosage: UNKNOWN
     Route: 065
  3. METFORMINE [Concomitant]
     Dosage: 1000 MG
     Route: 065
  4. INEGY [Concomitant]
     Dosage: 10/20
     Route: 065
  5. ALLOPURINOL [Concomitant]
     Dosage: UNKNOWN
     Route: 065
  6. COVERSYL                           /00790702/ [Concomitant]
     Dosage: UNKNOWN
     Route: 065
  7. TEMERIT [Concomitant]
     Dosage: UNKNOWN
     Route: 065
  8. KARDEGIC [Concomitant]
     Dosage: UNKNOWN
     Route: 065

REACTIONS (2)
  - Hyperamylasaemia [Recovering/Resolving]
  - Hyperlipasaemia [Recovering/Resolving]
